FAERS Safety Report 8938486 (Version 6)
Quarter: 2013Q4

REPORT INFORMATION
  Report Type: Report from Study
  Country: JP (occurrence: JP)
  Receive Date: 20121203
  Receipt Date: 20131014
  Transmission Date: 20140711
  Serious: Yes (Life-Threatening, Hospitalization, Other)
  Sender: FDA-Public Use
  Company Number: PHHY2012JP109483

PATIENT
  Age: 41 Year
  Sex: Male
  Weight: 63 kg

DRUGS (33)
  1. LEPONEX / CLOZARIL [Suspect]
     Indication: SCHIZOPHRENIA
     Dosage: 12.5 MG, QD
     Route: 048
     Dates: start: 20120904, end: 20120904
  2. LEPONEX / CLOZARIL [Suspect]
     Indication: SCHIZOPHRENIA, DISORGANISED TYPE
     Dosage: 25 MG, QD
     Route: 048
     Dates: start: 20120905, end: 20120907
  3. LEPONEX / CLOZARIL [Suspect]
     Dosage: 50 MG, QD
     Route: 048
     Dates: start: 20120908, end: 20120910
  4. LEPONEX / CLOZARIL [Suspect]
     Dosage: 75 MG, QD
     Route: 048
     Dates: start: 20120911, end: 20120912
  5. LEPONEX / CLOZARIL [Suspect]
     Dosage: 100 MG, QD
     Route: 048
     Dates: start: 20120913, end: 20120914
  6. LEPONEX / CLOZARIL [Suspect]
     Dosage: 125 MG, QD
     Route: 048
     Dates: start: 20120915, end: 20120917
  7. LEPONEX / CLOZARIL [Suspect]
     Dosage: 150 MG, QD
     Route: 048
     Dates: start: 20120918, end: 20120920
  8. LEPONEX / CLOZARIL [Suspect]
     Dosage: 175 MG, QD
     Route: 048
     Dates: start: 20120921, end: 20120923
  9. LEPONEX / CLOZARIL [Suspect]
     Dosage: 200 MG, QD
     Route: 048
     Dates: start: 20120924, end: 20121002
  10. LEPONEX / CLOZARIL [Suspect]
     Dosage: 250 MG, QD
     Route: 048
     Dates: start: 20121003, end: 20121009
  11. LEPONEX / CLOZARIL [Suspect]
     Dosage: 300 MG, QD
     Route: 048
     Dates: start: 20121010, end: 20121016
  12. LEPONEX / CLOZARIL [Suspect]
     Dosage: 350 MG, QD
     Route: 048
     Dates: start: 20121017, end: 20121023
  13. LEPONEX / CLOZARIL [Suspect]
     Dosage: 400 MG, QD
     Route: 048
     Dates: start: 20121024, end: 20121113
  14. LEPONEX / CLOZARIL [Suspect]
     Dosage: 450 MG, QD
     Route: 048
     Dates: start: 20121114, end: 20121127
  15. PURSENNID [Concomitant]
     Dosage: 48 MG, UNK
     Route: 048
  16. LENDORMIN [Concomitant]
     Indication: SCHIZOPHRENIA, DISORGANISED TYPE
     Dosage: UNK
     Route: 048
  17. ROHYPNOL [Concomitant]
     Indication: SCHIZOPHRENIA, DISORGANISED TYPE
     Dosage: UNK
     Route: 048
  18. NELBON [Concomitant]
     Indication: SCHIZOPHRENIA, DISORGANISED TYPE
     Dosage: UNK
     Route: 048
  19. MAGMITT [Concomitant]
     Dosage: 1980 MG, UNK
     Route: 048
  20. PANTOSIN [Concomitant]
     Dosage: 600 MG, UNK
     Route: 048
  21. AMLODIPINE ODAN [Concomitant]
     Indication: HYPERTENSION
     Dosage: 2.5 MG, UNK
     Route: 048
  22. LAXOBERON [Concomitant]
     Dosage: UNK
     Route: 048
  23. URSO [Concomitant]
     Dosage: 300 MG, UNK
     Route: 048
     Dates: start: 20121030
  24. LEVOMEPROMAZINE MALEATE [Concomitant]
     Dosage: 250 MG,
     Route: 048
     Dates: start: 20120904
  25. LEVOMEPROMAZINE MALEATE [Concomitant]
     Dosage: 150 MG,
     Route: 048
  26. LEVOMEPROMAZINE MALEATE [Concomitant]
     Dosage: 75 MG,
     Route: 048
  27. LEVOMEPROMAZINE MALEATE [Concomitant]
     Dosage: 25 MG,
     Route: 048
     Dates: end: 20120929
  28. OLANZAPINE [Concomitant]
     Dosage: 20 MG,
     Route: 048
     Dates: start: 20120904
  29. OLANZAPINE [Concomitant]
     Dosage: 15 MG,
     Route: 048
  30. OLANZAPINE [Concomitant]
     Dosage: 10 MG,
     Route: 048
     Dates: end: 20120929
  31. AKINETON [Concomitant]
     Indication: PARKINSONISM
     Dosage: 3 MG,
     Route: 048
  32. AKINETON [Concomitant]
     Dosage: 2 MG,
     Route: 048
  33. AKINETON [Concomitant]
     Dosage: 1 MG,
     Route: 048
     Dates: end: 20120922

REACTIONS (12)
  - Agranulocytosis [Recovered/Resolved]
  - Neutropenia [Recovered/Resolved]
  - White blood cell count decreased [Unknown]
  - Pyrexia [Not Recovered/Not Resolved]
  - Infection [Unknown]
  - Psychiatric symptom [Unknown]
  - Liver function test abnormal [Unknown]
  - Communication disorder [Unknown]
  - Soliloquy [Unknown]
  - White blood cell count increased [Recovered/Resolved]
  - Tachycardia [Unknown]
  - Anaemia [Unknown]
